FAERS Safety Report 21111727 (Version 4)
Quarter: 2025Q4

REPORT INFORMATION
  Report Type: Spontaneous
  Country: US (occurrence: None)
  Receive Date: 20220721
  Receipt Date: 20251203
  Transmission Date: 20260119
  Serious: No
  Sender: INCYTE
  Company Number: US-INCYTE CORPORATION-2022IN006952

PATIENT

DRUGS (2)
  1. JAKAFI [Suspect]
     Active Substance: RUXOLITINIB
     Indication: Polycythaemia vera
     Dosage: 15 MILLIGRAM, BID
  2. JAKAFI [Suspect]
     Active Substance: RUXOLITINIB
     Dosage: 5 MILLIGRAM, BID

REACTIONS (2)
  - Astigmatism [Not Recovered/Not Resolved]
  - Dizziness [Unknown]
